FAERS Safety Report 6302251-8 (Version None)
Quarter: 2009Q3

REPORT INFORMATION
  Report Type: 
  Country: None (occurrence: None)
  Receive Date: 20090810
  Receipt Date: 20071213
  Transmission Date: 20100115
  Serious: Yes (Other)
  Sender: FDA-Public Use
  Company Number: US-ASTRAZENECA-2007UW17822

PATIENT
  Age: 18718 Day
  Sex: Male
  Weight: 108.9 kg

DRUGS (11)
  1. SEROQUEL [Suspect]
     Indication: BIPOLAR DISORDER
     Route: 048
     Dates: start: 19990101
  2. SEROQUEL [Suspect]
     Dosage: 600-800 MG
     Route: 048
     Dates: start: 20020101
  3. FLUOXETINE [Concomitant]
     Route: 048
     Dates: start: 20020727
  4. METFORMIN [Concomitant]
     Route: 048
     Dates: start: 20020727
  5. ATIVAN [Concomitant]
     Dates: start: 20070727
  6. TRAZODONE HCL [Concomitant]
     Route: 048
     Dates: start: 20041024
  7. COGENTIN [Concomitant]
     Dosage: 2 MG/2 ML
     Dates: start: 20020727
  8. SOMA [Concomitant]
     Dosage: 50-350 MG
     Dates: start: 19820408
  9. INSULIN HUMAN [Concomitant]
     Dosage: 40 IU IN THE MORNING AND 30 IU IN THE EVENING
     Dates: start: 20020727
  10. LORCET-HD [Concomitant]
     Dosage: 10/650
     Dates: start: 19950624
  11. LISINOPRIL [Concomitant]
     Dates: start: 20020727

REACTIONS (3)
  - DIABETES MELLITUS [None]
  - DIABETIC ULCER [None]
  - TYPE 2 DIABETES MELLITUS [None]
